FAERS Safety Report 8444106 (Version 2)
Quarter: 2014Q1

REPORT INFORMATION
  Report Type: Spontaneous
  Country: MX (occurrence: MX)
  Receive Date: 20120306
  Receipt Date: 20140127
  Transmission Date: 20141002
  Serious: Yes (Other)
  Sender: FDA-Public Use
  Company Number: MX-BRISTOL-MYERS SQUIBB COMPANY-16425944

PATIENT
  Age: 70 Year
  Sex: Male

DRUGS (5)
  1. ONGLYZA TABS 5 MG [Suspect]
     Indication: TYPE 2 DIABETES MELLITUS
     Route: 048
     Dates: start: 20100901
  2. ROSIGLITAZONE [Concomitant]
  3. LOSARTAN [Concomitant]
  4. LEVOTHYROXIN [Concomitant]
  5. ASPIRIN PROTECT [Concomitant]

REACTIONS (2)
  - Adenocarcinoma pancreas [Not Recovered/Not Resolved]
  - Hypothyroidism [Unknown]
